FAERS Safety Report 7411390-X (Version None)
Quarter: 2011Q2

REPORT INFORMATION
  Report Type: 
  Country: None (occurrence: None)
  Receive Date: 20110413
  Receipt Date: 20100714
  Transmission Date: 20111010
  Serious: No
  Sender: FDA-Public Use
  Company Number: US-BRISTOL-MYERS SQUIBB COMPANY-15187420

PATIENT
  Age: 65 Year
  Sex: Male

DRUGS (5)
  1. LUBRIDERM [Concomitant]
  2. CETAPHIL [Concomitant]
  3. CLINDAMYCIN PHOSPHATE [Concomitant]
  4. RADIATION THERAPY [Suspect]
     Indication: HEAD AND NECK CANCER
  5. ERBITUX [Suspect]
     Indication: HEAD AND NECK CANCER
     Dosage: LOADING DOSE:01JUL2010 WEEKLY DOSE:07JUL2010
     Route: 042
     Dates: start: 20100701

REACTIONS (4)
  - ACNE [None]
  - RASH [None]
  - PAIN OF SKIN [None]
  - PAIN [None]
